FAERS Safety Report 8079714-0 (Version None)
Quarter: 2012Q1

REPORT INFORMATION
  Report Type: 
  Country: None (occurrence: None)
  Receive Date: 20120128
  Receipt Date: 20110830
  Transmission Date: 20120608
  Serious: No
  Sender: FDA-Public Use
  Company Number: US-ABBOTT-11P-163-0840292-00

PATIENT
  Age: 41 Year
  Sex: Female

DRUGS (3)
  1. ALLEGRA-D 12 HOUR [Concomitant]
     Indication: HYPERSENSITIVITY
  2. HUMIRA [Suspect]
     Indication: PSORIASIS
     Dates: start: 20110528
  3. HUMIRA [Suspect]
     Dates: start: 20110528, end: 20110827

REACTIONS (10)
  - INJECTION SITE ERYTHEMA [None]
  - HEADACHE [None]
  - LUNG INFECTION [None]
  - SPUTUM DISCOLOURED [None]
  - LOWER RESPIRATORY TRACT INFECTION [None]
  - COUGH [None]
  - INJECTION SITE PAIN [None]
  - PRODUCTIVE COUGH [None]
  - NECK PAIN [None]
  - MALAISE [None]
